FAERS Safety Report 20644460 (Version 2)
Quarter: 2022Q2

REPORT INFORMATION
  Report Type: Spontaneous
  Country: US (occurrence: US)
  Receive Date: 20220328
  Receipt Date: 20220513
  Transmission Date: 20220720
  Serious: No
  Sender: FDA-Public Use
  Company Number: US-SA-SAC20220323000397

PATIENT
  Sex: Female

DRUGS (1)
  1. DUPIXENT [Suspect]
     Active Substance: DUPILUMAB
     Indication: Dermatitis allergic
     Dosage: 300 MG, QOW
     Route: 058
     Dates: start: 20220225

REACTIONS (5)
  - Rash pruritic [Unknown]
  - Pruritus [Unknown]
  - Toothache [Unknown]
  - Hypersensitivity [Unknown]
  - Product use in unapproved indication [Unknown]
